FAERS Safety Report 8200952-8 (Version None)
Quarter: 2012Q1

REPORT INFORMATION
  Report Type: 
  Country: None (occurrence: None)
  Receive Date: 20120312
  Receipt Date: 20110907
  Transmission Date: 20120608
  Serious: No
  Sender: FDA-Public Use
  Company Number: US-ABBOTT-11P-163-0853073-00

PATIENT
  Age: 38 Year
  Sex: Female
  Weight: 46.308 kg

DRUGS (2)
  1. VIVELLE-DOT [Concomitant]
     Indication: PRODUCT USED FOR UNKNOWN INDICATION
  2. LUPRON DEPOT [Suspect]
     Indication: UTERINE LEIOMYOMA
     Dates: start: 20110701

REACTIONS (2)
  - INJECTION SITE INDURATION [None]
  - INJECTION SITE PAIN [None]
